FAERS Safety Report 5329526-3 (Version None)
Quarter: 2007Q2

REPORT INFORMATION
  Report Type: 
  Country: None (occurrence: None)
  Receive Date: 20070223
  Receipt Date: 20060323
  Transmission Date: 20071010
  Serious: Yes (Hospitalization)
  Sender: FDA-Public Use
  Company Number: WAES 0603USA04451

PATIENT
  Age: 52 Year
  Sex: Male
  Weight: 109.7705 kg

DRUGS (2)
  1. ZOCOR [Suspect]
     Dosage: PO
     Route: 048
     Dates: end: 20040719
  2. LISINOPRIL [Concomitant]

REACTIONS (2)
  - RENAL FAILURE ACUTE [None]
  - RHABDOMYOLYSIS [None]
